FAERS Safety Report 4693686-8 (Version None)
Quarter: 2005Q2

REPORT INFORMATION
  Report Type: 
  Country: None (occurrence: None)
  Receive Date: 20050615
  Receipt Date: 20050525
  Transmission Date: 20051028
  Serious: Yes (Hospitalization, Other)
  Sender: FDA-Public Use
  Company Number: US_0505116962

PATIENT
  Age: 26 Year
  Sex: Female
  Weight: 50 kg

DRUGS (5)
  1. CYMBALTA [Suspect]
     Indication: BORDERLINE PERSONALITY DISORDER
     Dosage: 30 MG DAY
     Route: 048
     Dates: start: 20050224, end: 20050301
  2. TRAZODONE [Concomitant]
  3. THORAZINE [Concomitant]
  4. ALEVE [Concomitant]
  5. MYLANTA (CALCIUM CARBONATE) [Concomitant]

REACTIONS (8)
  - AGITATION [None]
  - CONDITION AGGRAVATED [None]
  - CONVULSION [None]
  - INCOHERENT [None]
  - MUSCLE TWITCHING [None]
  - MYOCLONUS [None]
  - SEROTONIN SYNDROME [None]
  - TREMOR [None]
